FAERS Safety Report 18314044 (Version 5)
Quarter: 2022Q2

REPORT INFORMATION
  Report Type: Spontaneous
  Country: BR (occurrence: None)
  Receive Date: 20200925
  Receipt Date: 20220609
  Transmission Date: 20220721
  Serious: Yes (Other)
  Sender: FDA-Public Use
  Company Number: BR-MERCK HEALTHCARE KGAA-9187112

PATIENT
  Age: 66 Year
  Sex: Female

DRUGS (5)
  1. GLIFAGE [Suspect]
     Active Substance: METFORMIN HYDROCHLORIDE
     Indication: Diabetes mellitus
     Dosage: MANUFACTURE /APR/2020
     Route: 048
     Dates: start: 202004, end: 2020
  2. GLIFAGE [Suspect]
     Active Substance: METFORMIN HYDROCHLORIDE
     Route: 048
     Dates: start: 2020, end: 202202
  3. GLIFAGE [Suspect]
     Active Substance: METFORMIN HYDROCHLORIDE
     Dosage: 30 TABLETS
     Route: 048
     Dates: start: 202202
  4. PURAN [Concomitant]
     Active Substance: LEVOTHYROXINE SODIUM
     Indication: Thyroid disorder
  5. LOTAR [LOSARTAN POTASSIUM] [Concomitant]
     Indication: Hypertension
     Route: 048

REACTIONS (17)
  - Cataract [Not Recovered/Not Resolved]
  - Drug intolerance [Unknown]
  - Asthenia [Recovering/Resolving]
  - Sluggishness [Not Recovered/Not Resolved]
  - Pain in extremity [Recovering/Resolving]
  - Dizziness [Not Recovered/Not Resolved]
  - Nervousness [Unknown]
  - Confusional state [Not Recovered/Not Resolved]
  - Dry mouth [Unknown]
  - Alopecia [Unknown]
  - Skin swelling [Unknown]
  - Eyelid thickening [Unknown]
  - Mobility decreased [Unknown]
  - Daydreaming [Unknown]
  - Pruritus [Unknown]
  - Memory impairment [Not Recovered/Not Resolved]
  - Treatment noncompliance [Unknown]

NARRATIVE: CASE EVENT DATE: 20200701
